FAERS Safety Report 20993284 (Version 2)
Quarter: 2022Q3

REPORT INFORMATION
  Report Type: Spontaneous
  Country: CN (occurrence: CN)
  Receive Date: 20220622
  Receipt Date: 20220701
  Transmission Date: 20221027
  Serious: Yes (Other)
  Sender: FDA-Public Use
  Company Number: CN-NOVARTISPH-NVSC2022CN141176

PATIENT
  Age: 20 Year
  Sex: Male

DRUGS (4)
  1. COSENTYX [Suspect]
     Active Substance: SECUKINUMAB
     Indication: Psoriasis
     Dosage: 300 MG (2ML:300MG)/ TIME FOR 5 TIMES)
     Route: 058
     Dates: start: 20220322
  2. COSENTYX [Suspect]
     Active Substance: SECUKINUMAB
     Dosage: 300 MG  (2ML:300MG)/ TIME FOR 5 TIMES)
     Route: 058
     Dates: start: 20220329
  3. COSENTYX [Suspect]
     Active Substance: SECUKINUMAB
     Dosage: 300 MG  (2ML:300MG)/ TIME FOR 5 TIMES)
     Route: 058
     Dates: start: 20220405
  4. COSENTYX [Suspect]
     Active Substance: SECUKINUMAB
     Dosage: 300 MG  (2ML:300MG)/ TIME FOR 5 TIMES)
     Route: 058
     Dates: start: 20220412, end: 20220418

REACTIONS (3)
  - Abdominal pain [Not Recovered/Not Resolved]
  - Pallor [Unknown]
  - Decreased appetite [Unknown]

NARRATIVE: CASE EVENT DATE: 20220525
